FAERS Safety Report 6328428-3 (Version None)
Quarter: 2009Q3

REPORT INFORMATION
  Report Type: 
  Country: None (occurrence: None)
  Receive Date: 20090825
  Receipt Date: 20090630
  Transmission Date: 20100115
  Serious: No
  Sender: FDA-Public Use
  Company Number: US-ABBOTT-09P-163-0583093-00

PATIENT
  Sex: Female
  Weight: 90.8 kg

DRUGS (8)
  1. SYNTHROID [Suspect]
     Indication: DRUG USE FOR UNKNOWN INDICATION
     Dosage: ALTERNATE 88 AND 100
     Route: 048
     Dates: start: 20080101, end: 20080630
  2. SYNTHROID [Suspect]
     Route: 048
     Dates: start: 19960101, end: 19990101
  3. SYNTHROID [Suspect]
     Route: 048
     Dates: start: 19990101, end: 20080101
  4. SYNTHROID [Suspect]
     Route: 048
     Dates: start: 20090630
  5. TRIAMTERENE AND HYDROCHLOROTHIAZIDE [Suspect]
     Indication: HYPERTENSION
     Dosage: 50/25
     Route: 048
  6. ACIPHEX [Concomitant]
     Indication: GASTROOESOPHAGEAL REFLUX DISEASE
     Route: 048
  7. TYLENOL (CAPLET) [Concomitant]
     Indication: DRUG USE FOR UNKNOWN INDICATION
     Route: 048
  8. TYLENOL SLEEP [Concomitant]
     Indication: INSOMNIA
     Route: 048

REACTIONS (4)
  - HYPERTENSION [None]
  - OEDEMA PERIPHERAL [None]
  - SKIN CHAPPED [None]
  - WEIGHT INCREASED [None]
